FAERS Safety Report 9302234 (Version 2)
Quarter: 2013Q3

REPORT INFORMATION
  Report Type: Report from Study
  Country: CN (occurrence: CN)
  Receive Date: 20130522
  Receipt Date: 20130923
  Transmission Date: 20140515
  Serious: Yes (Death)
  Sender: FDA-Public Use
  Company Number: CN-ROCHE-1212027

PATIENT
  Age: 40 Year
  Sex: Female
  Weight: 44 kg

DRUGS (1)
  1. AVASTIN [Suspect]
     Indication: RECTAL CANCER METASTATIC
     Dosage: LAST DOSE PRIOR TO EVENT ON:15/FEB/2013
     Route: 042
     Dates: start: 20121013

REACTIONS (2)
  - Intestinal fistula [Fatal]
  - Infection [Fatal]
